FAERS Safety Report 23525678 (Version 1)
Quarter: 2024Q1

REPORT INFORMATION
  Report Type: Report from Study
  Country: US (occurrence: US)
  Receive Date: 20240215
  Receipt Date: 20240215
  Transmission Date: 20240410
  Serious: Yes (Other)
  Sender: FDA-Public Use
  Company Number: US-ABBVIE-5503373

PATIENT
  Sex: Female
  Weight: 90.7 kg

DRUGS (3)
  1. HUMIRA [Suspect]
     Active Substance: ADALIMUMAB
     Indication: Crohn^s disease
     Dosage: DISCONTINUED
     Route: 058
     Dates: start: 20150226
  2. HUMIRA [Suspect]
     Active Substance: ADALIMUMAB
     Dosage: LAST ADMIN DATE WAS DEC 2023? LEFT LEG(ROUTE)
     Route: 058
     Dates: start: 20231207
  3. HUMIRA [Suspect]
     Active Substance: ADALIMUMAB
     Dosage: STOMACH ROUTE(ROUTE)
     Route: 058
     Dates: start: 20231229, end: 2024

REACTIONS (2)
  - Crohn^s disease [Recovered/Resolved]
  - Surgery [Unknown]

NARRATIVE: CASE EVENT DATE: 20150101
